FAERS Safety Report 11748652 (Version 1)
Quarter: 2015Q4

REPORT INFORMATION
  Report Type: Spontaneous
  Country: ES (occurrence: ES)
  Receive Date: 20151117
  Receipt Date: 20151117
  Transmission Date: 20160304
  Serious: Yes (Other)
  Sender: FDA-Public Use
  Company Number: ES-MYLANLABS-2015M1039948

PATIENT

DRUGS (1)
  1. HYDROXYCHLOROQUINE [Suspect]
     Active Substance: HYDROXYCHLOROQUINE
     Indication: POLYMORPHIC LIGHT ERUPTION
     Dosage: 200 MG/12 HOURS
     Route: 065
     Dates: start: 2010

REACTIONS (1)
  - Interstitial lung disease [Recovered/Resolved]
